FAERS Safety Report 21382072 (Version 1)
Quarter: 2022Q3

REPORT INFORMATION
  Report Type: Spontaneous
  Country: US (occurrence: US)
  Receive Date: 20220927
  Receipt Date: 20220927
  Transmission Date: 20221026
  Serious: No
  Sender: FDA-Public Use
  Company Number: US-MYLANLABS-2022M1095571

PATIENT
  Sex: Female
  Weight: 87.09 kg

DRUGS (1)
  1. ESTRADIOL [Suspect]
     Active Substance: ESTRADIOL
     Indication: Hernia
     Dosage: UNK
     Route: 067
     Dates: start: 20220614, end: 20220624

REACTIONS (6)
  - Eczema [Unknown]
  - Lip dry [Unknown]
  - Skin mass [Unknown]
  - Rash [Unknown]
  - Lip swelling [Unknown]
  - Product use in unapproved indication [Unknown]
